FAERS Safety Report 7221498-X (Version None)
Quarter: 2011Q1

REPORT INFORMATION
  Report Type: 
  Country: None (occurrence: None)
  Receive Date: 20110112
  Receipt Date: 20110104
  Transmission Date: 20110831
  Serious: Yes (Other)
  Sender: FDA-Public Use
  Company Number: PHHY2011CO00844

PATIENT
  Age: 57 Year
  Sex: Female

DRUGS (2)
  1. NORMOLIP [Concomitant]
     Dosage: 200 MG, QD
  2. RASILEZ [Suspect]
     Indication: MICROALBUMINURIA
     Dosage: 150 MG
     Route: 048
     Dates: start: 20100902, end: 20101124

REACTIONS (3)
  - GLOMERULAR FILTRATION RATE DECREASED [None]
  - NEPHROPATHY [None]
  - BLOOD CREATINE INCREASED [None]
